FAERS Safety Report 6695852-9 (Version None)
Quarter: 2010Q2

REPORT INFORMATION
  Report Type: 
  Country: None (occurrence: None)
  Receive Date: 20100422
  Receipt Date: 20100422
  Transmission Date: 20101027
  Serious: Yes (Other)
  Sender: FDA-Public Use
  Company Number: None

PATIENT
  Age: 64 Year
  Sex: Male
  Weight: 81.4 kg

DRUGS (2)
  1. TAMSULOSIN HCL [Suspect]
     Indication: BENIGN PROSTATIC HYPERPLASIA
     Dosage: ONE DAILY 30 MINUTES AFTER BREAKFAST
     Dates: start: 20100320
  2. TAMSULOSIN HCL [Suspect]
     Indication: BENIGN PROSTATIC HYPERPLASIA
     Dosage: ONE DAILY 30 MINUTES AFTER BREAKFAST
     Dates: start: 20100420

REACTIONS (5)
  - CONDITION AGGRAVATED [None]
  - DYSURIA [None]
  - PRODUCT SUBSTITUTION ISSUE [None]
  - URINARY HESITATION [None]
  - URINE FLOW DECREASED [None]
